FAERS Safety Report 12475356 (Version 1)
Quarter: 2016Q2

REPORT INFORMATION
  Report Type: Report from Study
  Country: ES (occurrence: ES)
  Receive Date: 20160617
  Receipt Date: 20160617
  Transmission Date: 20160815
  Serious: Yes (Hospitalization)
  Sender: FDA-Public Use
  Company Number: ES-ROCHE-1744496

PATIENT
  Sex: Female
  Weight: 65 kg

DRUGS (2)
  1. CAPECITABINE. [Suspect]
     Active Substance: CAPECITABINE
     Indication: HER-2 POSITIVE BREAST CANCER
     Route: 048
     Dates: start: 201501, end: 201511
  2. LAPATINIB [Concomitant]
     Active Substance: LAPATINIB
     Indication: HER-2 POSITIVE BREAST CANCER
     Route: 048
     Dates: start: 201501, end: 201511

REACTIONS (3)
  - Pyrexia [Unknown]
  - General physical health deterioration [Unknown]
  - Infection [Unknown]
